FAERS Safety Report 6891289-8 (Version None)
Quarter: 2010Q3

REPORT INFORMATION
  Report Type: 
  Country: None (occurrence: None)
  Receive Date: 20100731
  Receipt Date: 20090721
  Transmission Date: 20110219
  Serious: No
  Sender: FDA-Public Use
  Company Number: US-PFIZER INC-2009245315

PATIENT
  Sex: Female

DRUGS (4)
  1. LIPITOR [Suspect]
     Indication: BLOOD CHOLESTEROL INCREASED
     Dosage: 10 MG, 1X/DAY
     Route: 048
     Dates: start: 20070101, end: 20070101
  2. CYCLOSPORINE [Interacting]
     Indication: ANAEMIA
     Dosage: UNK
     Dates: end: 20070101
  3. VALSARTAN [Concomitant]
     Dosage: UNK
  4. RANITIDINE [Concomitant]
     Dosage: UNK

REACTIONS (3)
  - ALOPECIA [None]
  - BLOOD CHOLESTEROL INCREASED [None]
  - DRUG INTERACTION [None]
